FAERS Safety Report 8833650 (Version 1)
Quarter: 2012Q4

REPORT INFORMATION
  Report Type: Report from Study
  Country: JP (occurrence: JP)
  Receive Date: 20121010
  Receipt Date: 20121010
  Transmission Date: 20130627
  Serious: Yes (Hospitalization)
  Sender: FDA-Public Use
  Company Number: JP-ROCHE-653585

PATIENT
  Age: 34 Year
  Sex: Male
  Weight: 95 kg

DRUGS (34)
  1. ROACTEMRA [Suspect]
     Indication: RHEUMATOID ARTHRITIS
     Route: 041
     Dates: start: 20080729, end: 20080729
  2. ROACTEMRA [Suspect]
     Route: 041
     Dates: start: 20080826, end: 20080826
  3. ROACTEMRA [Suspect]
     Route: 041
     Dates: start: 20080926, end: 20080926
  4. ROACTEMRA [Suspect]
     Route: 041
     Dates: start: 20081021, end: 20081021
  5. ROACTEMRA [Suspect]
     Route: 041
     Dates: start: 20081118, end: 20081118
  6. ROACTEMRA [Suspect]
     Route: 041
     Dates: start: 20081216, end: 20081216
  7. ROACTEMRA [Suspect]
     Route: 041
     Dates: start: 20090210, end: 20090210
  8. ROACTEMRA [Suspect]
     Route: 041
     Dates: start: 20090310, end: 20090310
  9. ROACTEMRA [Suspect]
     Route: 041
     Dates: start: 20090407, end: 20090407
  10. ROACTEMRA [Suspect]
     Route: 041
     Dates: start: 20090512, end: 20090512
  11. ROACTEMRA [Suspect]
     Route: 041
     Dates: start: 20090609, end: 20090609
  12. ROACTEMRA [Suspect]
     Route: 041
     Dates: start: 20090707, end: 20090707
  13. ROACTEMRA [Suspect]
     Route: 041
     Dates: start: 20090804, end: 20090804
  14. ROACTEMRA [Suspect]
     Route: 042
     Dates: start: 20100803, end: 20100803
  15. ROACTEMRA [Suspect]
     Route: 042
     Dates: start: 20100831, end: 20100831
  16. ROACTEMRA [Suspect]
     Route: 042
     Dates: start: 20100928, end: 20100929
  17. ROACTEMRA [Suspect]
     Route: 042
     Dates: start: 20101026, end: 20101026
  18. ROACTEMRA [Suspect]
     Route: 042
     Dates: start: 20101130, end: 20101130
  19. ROACTEMRA [Suspect]
     Route: 042
     Dates: start: 20101221, end: 20101221
  20. ROACTEMRA [Suspect]
     Route: 042
     Dates: start: 20110118, end: 20110118
  21. ROACTEMRA [Suspect]
     Route: 042
     Dates: start: 20110215, end: 20110215
  22. ROACTEMRA [Suspect]
     Dosage: infusion rate decreased
     Route: 042
     Dates: start: 20110726, end: 20110726
  23. PREDNISOLONE [Suspect]
     Indication: RHEUMATOID ARTHRITIS
     Route: 048
  24. PREDNISOLONE [Suspect]
     Route: 048
  25. RIMATIL [Concomitant]
     Route: 048
  26. RHEUMATREX [Concomitant]
     Route: 048
  27. RHEUMATREX [Concomitant]
     Route: 048
     Dates: start: 20090512, end: 20090706
  28. RHEUMATREX [Concomitant]
     Route: 048
  29. CELECOXIB [Concomitant]
     Dosage: DRUG NAME REPORTED AS CELECOX
     Route: 048
  30. BAYASPIRIN [Concomitant]
     Route: 048
  31. GASTER [Concomitant]
     Route: 048
  32. VOLTAREN [Concomitant]
     Dosage: DRUG NAME: VOLTAREN: TAPE 15 MG. DOSE FORM: TAPE
     Route: 061
  33. VOLTAREN [Concomitant]
     Route: 048
  34. HYALURONATE SODIUM [Concomitant]
     Route: 014
     Dates: start: 20090217, end: 20090217

REACTIONS (4)
  - Cardiac failure [Recovering/Resolving]
  - Pneumonia bacterial [Recovered/Resolved]
  - Rheumatoid arthritis [Recovering/Resolving]
  - Nasopharyngitis [Recovered/Resolved]
